FAERS Safety Report 7926735 (Version 4)
Quarter: 2018Q2

REPORT INFORMATION
  Report Type: Spontaneous
  Country: US (occurrence: US)
  Receive Date: 20110502
  Receipt Date: 20180615
  Transmission Date: 20180711
  Serious: Yes (Other)
  Sender: FDA-Public Use
  Company Number: US-ASTRAZENECA-2011SE08242

PATIENT
  Age: 72 Year
  Sex: Female

DRUGS (7)
  1. ZANTAC [Concomitant]
     Active Substance: RANITIDINE HYDROCHLORIDE
  2. SYMBICORT [Suspect]
     Active Substance: BUDESONIDE\FORMOTEROL FUMARATE DIHYDRATE
     Indication: ASTHMA
     Dosage: 160/4.5 MCG 2 PUFFS TWICE DAILY
     Route: 055
     Dates: start: 201711
  3. NEXIUM [Suspect]
     Active Substance: ESOMEPRAZOLE MAGNESIUM
     Route: 048
     Dates: start: 2002
  4. PEPCID [Concomitant]
     Active Substance: FAMOTIDINE
  5. PRILOSEC OTC [Suspect]
     Active Substance: OMEPRAZOLE MAGNESIUM
     Route: 048
  6. SYMBICORT [Suspect]
     Active Substance: BUDESONIDE\FORMOTEROL FUMARATE DIHYDRATE
     Indication: ASTHMA
     Dosage: 160/4.5 MCG 2 PUFFS TWICE DAILY
     Route: 055
     Dates: start: 201712
  7. ZYRTEC OTC [Concomitant]
     Indication: ASTHMA
     Dates: start: 201711

REACTIONS (13)
  - Regurgitation [Unknown]
  - General physical health deterioration [Unknown]
  - Anaemia [Unknown]
  - Arthritis [Unknown]
  - Cough [Unknown]
  - Vitreous floaters [Unknown]
  - Drug ineffective [Unknown]
  - Gastrooesophageal reflux disease [Unknown]
  - Hiatus hernia [Unknown]
  - Dyspnoea [Unknown]
  - Drug dose omission [Unknown]
  - Visual impairment [Unknown]
  - Thyroid cancer [Unknown]

NARRATIVE: CASE EVENT DATE: 201801
